FAERS Safety Report 12010373 (Version 2)
Quarter: 2016Q3

REPORT INFORMATION
  Report Type: Report from Study
  Country: US (occurrence: US)
  Receive Date: 20160205
  Receipt Date: 20160923
  Transmission Date: 20161109
  Serious: Yes (Hospitalization)
  Sender: FDA-Public Use
  Company Number: US-PFIZER INC-2016049421

PATIENT
  Age: 20 Year
  Sex: Female
  Weight: 64 kg

DRUGS (14)
  1. IFOSFAMIDE. [Concomitant]
     Active Substance: IFOSFAMIDE
     Indication: ANAPLASTIC LARGE CELL LYMPHOMA T- AND NULL-CELL TYPES
     Dosage: 800MG/M2 OVER 60 MIN ON DAYS 1-5
     Route: 042
     Dates: end: 20151002
  2. METHOTREXATE SODIUM. [Suspect]
     Active Substance: METHOTREXATE SODIUM
     Indication: ANAPLASTIC LARGE CELL LYMPHOMA T- AND NULL-CELL TYPES
     Dosage: 7.5-12MG ON DAY 1 (AGE BASED DOSING)
     Route: 037
  3. CYCLOPHOSPHAMIDE. [Concomitant]
     Active Substance: CYCLOPHOSPHAMIDE
     Dosage: 200 MG/M2 OVER 15-30 MINUTES ON DAYS 1-5
     Route: 042
     Dates: start: 20151020, end: 20151024
  4. CYCLOPHOSPHAMIDE. [Concomitant]
     Active Substance: CYCLOPHOSPHAMIDE
     Indication: ANAPLASTIC LARGE CELL LYMPHOMA T- AND NULL-CELL TYPES
     Dosage: 200 MG/M2 OVER 15-30 MINUTES ON DAYS 1 AND 2
     Route: 042
  5. CRIZOTINIB [Suspect]
     Active Substance: CRIZOTINIB
     Indication: ANAPLASTIC LARGE CELL LYMPHOMA T- AND NULL-CELL TYPES
     Dosage: 165MG/M2 BID ON DAYS 1-21
     Route: 048
     Dates: start: 20151020, end: 20151110
  6. DEXAMETHASONE. [Suspect]
     Active Substance: DEXAMETHASONE
     Dosage: 5MG/M2 BID ON DAYS 1-5
     Route: 048
     Dates: start: 20151020, end: 20151025
  7. LUPRON [Suspect]
     Active Substance: LEUPROLIDE ACETATE
  8. CYTARABINE. [Concomitant]
     Active Substance: CYTARABINE
     Indication: ANAPLASTIC LARGE CELL LYMPHOMA T- AND NULL-CELL TYPES
     Dosage: 15-24MG ON DAY 1 (AGE BASED DOSING)
     Route: 037
  9. CYTARABINE. [Concomitant]
     Active Substance: CYTARABINE
     Dosage: 150MG/M2 OVER 1-30 MINUTES Q12 HOURS ON DAYS 4 AND 5 (TOTAL 4 DOSES)
     Route: 042
     Dates: end: 20151002
  10. VP-16 [Concomitant]
     Active Substance: ETOPOSIDE
     Indication: ANAPLASTIC LARGE CELL LYMPHOMA T- AND NULL-CELL TYPES
     Dosage: 100MG/M2 OVER 2 HOURS ON DAYS 4 AND 5
     Route: 042
     Dates: end: 20151002
  11. CALCIUM FOLINATE [Suspect]
     Active Substance: LEUCOVORIN CALCIUM
     Indication: ANAPLASTIC LARGE CELL LYMPHOMA T- AND NULL-CELL TYPES
  12. DEXAMETHASONE. [Suspect]
     Active Substance: DEXAMETHASONE
     Indication: ANAPLASTIC LARGE CELL LYMPHOMA T- AND NULL-CELL TYPES
     Dosage: 5MG/M2 QD ON DAYS 1-2, AND 5MG/M2 BID ON DAYS 3-5
     Route: 048
  13. DOXORUBICIN HCL [Concomitant]
     Active Substance: DOXORUBICIN HYDROCHLORIDE
     Indication: ANAPLASTIC LARGE CELL LYMPHOMA T- AND NULL-CELL TYPES
     Dosage: 25MG/M2 OVER 1-15 MIN ON DAYS 4 AND 5
     Route: 042
     Dates: start: 20151023, end: 20151024
  14. METHOTREXATE SODIUM. [Suspect]
     Active Substance: METHOTREXATE SODIUM
     Dosage: 3000 MG/M2 OVER 3 HOURS ON DAY 1
     Route: 042
     Dates: start: 20151020, end: 20151020

REACTIONS (1)
  - Embolism [Unknown]

NARRATIVE: CASE EVENT DATE: 20151110
